FAERS Safety Report 11237609 (Version 2)
Quarter: 2015Q4

REPORT INFORMATION
  Report Type: Spontaneous
  Country: BR (occurrence: BR)
  Receive Date: 20150703
  Receipt Date: 20151117
  Transmission Date: 20160304
  Serious: Yes (Hospitalization)
  Sender: FDA-Public Use
  Company Number: BR-ROCHE-1599356

PATIENT
  Age: 74 Year
  Sex: Female
  Weight: 68 kg

DRUGS (13)
  1. AMYTRIL [Suspect]
     Active Substance: AMITRIPTYLINE HYDROCHLORIDE
     Indication: PRODUCT USED FOR UNKNOWN INDICATION
     Route: 065
  2. RIVOTRIL [Suspect]
     Active Substance: CLONAZEPAM
     Indication: NERVOUS SYSTEM DISORDER
     Route: 065
  3. HYDROCHLOROTHIAZIDE. [Concomitant]
     Active Substance: HYDROCHLOROTHIAZIDE
     Indication: HYPERTENSION
     Route: 065
  4. FENNEL. [Concomitant]
     Active Substance: FENNEL
  5. DEXASON [Concomitant]
     Route: 065
  6. LEMONGRASS [Concomitant]
  7. TYLENOL [Concomitant]
     Active Substance: ACETAMINOPHEN
     Indication: PAIN
  8. ACHILLEA MILLEFOLIUM [Concomitant]
     Active Substance: ACHILLEA MILLEFOLIUM
  9. RIVOTRIL [Suspect]
     Active Substance: CLONAZEPAM
     Indication: INSOMNIA
     Route: 065
     Dates: start: 2009
  10. PROPRANOLOL [Concomitant]
     Active Substance: PROPRANOLOL\PROPRANOLOL HYDROCHLORIDE
     Indication: HYPERTENSION
     Route: 065
  11. AAS INFANTIL [Concomitant]
     Active Substance: ASPIRIN
     Indication: HYPERTENSION
     Route: 065
  12. OMEPRAZOLE. [Concomitant]
     Active Substance: OMEPRAZOLE
     Route: 065
  13. ASPIRINA [Concomitant]
     Active Substance: ASPIRIN
     Indication: HYPERTENSION
     Route: 065

REACTIONS (13)
  - Headache [Unknown]
  - Dysuria [Unknown]
  - Insomnia [Unknown]
  - Balance disorder [Unknown]
  - Drug dependence [Unknown]
  - Appetite disorder [Unknown]
  - Weight increased [Unknown]
  - Product physical issue [Unknown]
  - Abdominal pain [Unknown]
  - Cholelithiasis [Unknown]
  - Self esteem decreased [Unknown]
  - Hypersomnia [Unknown]
  - Fall [Unknown]
